FAERS Safety Report 16969265 (Version 2)
Quarter: 2019Q4

REPORT INFORMATION
  Report Type: Spontaneous
  Country: US (occurrence: US)
  Receive Date: 20191029
  Receipt Date: 20191129
  Transmission Date: 20200122
  Serious: Yes (Life-Threatening, Hospitalization, Other)
  Sender: FDA-Public Use
  Company Number: US-ASTRAZENECA-2019SF51105

PATIENT
  Age: 64 Year
  Sex: Female
  Weight: 68.5 kg

DRUGS (2)
  1. BRILINTA [Suspect]
     Active Substance: TICAGRELOR
     Indication: STENT PLACEMENT
     Dosage: 90.0MG UNKNOWN
     Route: 048
     Dates: start: 20171124, end: 20190114
  2. LIPITOR [Concomitant]
     Active Substance: ATORVASTATIN CALCIUM
     Dosage: 40.0MG UNKNOWN
     Dates: start: 20171213

REACTIONS (2)
  - Cerebrovascular accident [Recovered/Resolved]
  - Platelet disorder [Unknown]

NARRATIVE: CASE EVENT DATE: 2017
